FAERS Safety Report 22367247 (Version 1)
Quarter: 2023Q2

REPORT INFORMATION
  Report Type: Spontaneous
  Country: US (occurrence: US)
  Receive Date: 20230525
  Receipt Date: 20230525
  Transmission Date: 20230722
  Serious: Yes (Other)
  Sender: FDA-Public Use
  Company Number: US-MYLANLABS-2023M1054366

PATIENT
  Age: 62 Year
  Sex: Female

DRUGS (5)
  1. CARBOPLATIN [Suspect]
     Active Substance: CARBOPLATIN
     Indication: Ovarian clear cell carcinoma
     Dosage: UNK, RECEIVED THREE CYCLES
     Route: 065
  2. CARBOPLATIN [Suspect]
     Active Substance: CARBOPLATIN
     Dosage: UNK, DOSE UNKNOWN
     Route: 065
  3. PACLITAXEL [Suspect]
     Active Substance: PACLITAXEL
     Indication: Ovarian clear cell carcinoma
     Dosage: UNK, RECEIVED THREE CYCLES
     Route: 065
  4. GEMCITABINE [Suspect]
     Active Substance: GEMCITABINE
     Indication: Ovarian clear cell carcinoma
     Dosage: UNK
     Route: 065
  5. BEVACIZUMAB [Suspect]
     Active Substance: BEVACIZUMAB
     Indication: Ovarian clear cell carcinoma
     Dosage: UNK
     Route: 065

REACTIONS (2)
  - Drug ineffective [Unknown]
  - Disease progression [Unknown]
